FAERS Safety Report 7261366-0 (Version None)
Quarter: 2011Q1

REPORT INFORMATION
  Report Type: 
  Country: None (occurrence: None)
  Receive Date: 20110130
  Receipt Date: 20101018
  Transmission Date: 20110831
  Serious: Yes (Hospitalization)
  Sender: FDA-Public Use
  Company Number: US-ABBOTT-10P-163-0680275-00

PATIENT
  Sex: Female
  Weight: 47.67 kg

DRUGS (11)
  1. HUMIRA [Suspect]
     Indication: CROHN'S DISEASE
     Dates: start: 20101008, end: 20101008
  2. SYNTHROID [Concomitant]
     Indication: HYPOTHYROIDISM
  3. FOLIC ACID [Concomitant]
     Indication: PRODUCT USED FOR UNKNOWN INDICATION
  4. HUMIRA [Suspect]
     Dates: start: 20101009, end: 20101009
  5. COREG [Concomitant]
     Indication: HYPERTENSION
  6. TEKTURNA [Concomitant]
     Indication: HYPERTENSION
  7. PRAVACHOL [Concomitant]
     Indication: HYPERTENSION
  8. NEXIUM [Concomitant]
     Indication: CROHN'S DISEASE
  9. EVISTA [Concomitant]
     Indication: OSTEOPOROSIS
  10. VITAMIN B-12 [Concomitant]
     Indication: PRODUCT USED FOR UNKNOWN INDICATION
  11. CALCIUM [Concomitant]
     Indication: PRODUCT USED FOR UNKNOWN INDICATION

REACTIONS (1)
  - PLATELET COUNT DECREASED [None]
